FAERS Safety Report 7941290-8 (Version None)
Quarter: 2011Q4

REPORT INFORMATION
  Report Type: 
  Country: None (occurrence: None)
  Receive Date: 20111128
  Receipt Date: 20111121
  Transmission Date: 20120403
  Serious: Yes (Hospitalization)
  Sender: FDA-Public Use
  Company Number: US-B.I. PHARMACEUTICALS,INC./RIDGEFIELD-2011-BP-26664BP

PATIENT
  Sex: Male

DRUGS (21)
  1. TAGAMET [Concomitant]
     Indication: DYSPEPSIA
     Route: 048
  2. HUMULIN N [Concomitant]
     Indication: DIABETES MELLITUS
     Dosage: 62 U
     Route: 058
  3. FLOMAX [Concomitant]
     Indication: BENIGN PROSTATIC HYPERPLASIA
     Dosage: 0.4 NR
     Route: 048
  4. TUSSIONEX SUSPENSION [Concomitant]
     Indication: COUGH
     Route: 048
  5. ACETAMINOPHEN [Concomitant]
     Indication: PAIN
     Route: 048
  6. HUMULIN N [Concomitant]
     Dosage: 40 U
     Route: 058
  7. NITROSTATS [Concomitant]
     Indication: CHEST PAIN
     Route: 048
  8. NASACORT [Concomitant]
     Indication: MULTIPLE ALLERGIES
     Route: 045
  9. METOLAZONE [Concomitant]
     Indication: HYPERTENSION
     Route: 048
  10. ISORBID [Concomitant]
     Indication: CARDIAC FAILURE CONGESTIVE
     Dosage: 40 MG
     Route: 048
  11. ALLOPURINOL [Concomitant]
     Indication: GOUT
     Dosage: 100 MG
     Route: 048
  12. LASIX [Concomitant]
     Dosage: 20 MG
     Route: 048
  13. FISH OIL [Concomitant]
     Indication: SUPPLEMENTATION THERAPY
     Route: 048
  14. VICODIN [Concomitant]
     Indication: TOOTHACHE
     Route: 048
  15. COMBIVENT [Suspect]
     Indication: CHRONIC OBSTRUCTIVE PULMONARY DISEASE
     Route: 055
     Dates: start: 20020101
  16. SYMBICORT [Concomitant]
     Indication: CHRONIC OBSTRUCTIVE PULMONARY DISEASE
     Route: 055
  17. NORVASC [Concomitant]
     Indication: HYPERTENSION
     Dosage: 5 MG
     Route: 048
  18. PREDNISONE TAB [Concomitant]
     Indication: CHRONIC OBSTRUCTIVE PULMONARY DISEASE
     Dosage: 2.5 MG
     Route: 048
  19. LASIX [Concomitant]
     Indication: CARDIAC FAILURE CONGESTIVE
     Dosage: 40 MG
     Route: 048
  20. ALPRAZOLAM [Concomitant]
     Indication: ANXIETY
     Dosage: 0.25 MG
     Route: 048
  21. METAMUCIL-2 [Concomitant]
     Indication: CONSTIPATION
     Route: 048

REACTIONS (3)
  - DYSPNOEA [None]
  - OEDEMA PERIPHERAL [None]
  - TOOTH EROSION [None]
